FAERS Safety Report 13093213 (Version 1)
Quarter: 2017Q1

REPORT INFORMATION
  Report Type: Spontaneous
  Country: US (occurrence: US)
  Receive Date: 20170106
  Receipt Date: 20170106
  Transmission Date: 20170428
  Serious: Yes (Life-Threatening)
  Sender: FDA-Public Use
  Company Number: None

PATIENT
  Sex: Male
  Weight: 90.27 kg

DRUGS (1)
  1. OXYCODONE ACETAMINOPHEN 10.325MG AMNEAL [Suspect]
     Active Substance: ACETAMINOPHEN\OXYCODONE HYDROCHLORIDE
     Indication: BACK DISORDER
     Dosage: TAKE 1 TABLET BY MOUTH EVERY 6 HOURS IF NEEDED
     Route: 048
     Dates: start: 2014, end: 20160221

REACTIONS (2)
  - Organ failure [None]
  - Product substitution issue [None]

NARRATIVE: CASE EVENT DATE: 20160221
